FAERS Safety Report 24970935 (Version 3)
Quarter: 2025Q3

REPORT INFORMATION
  Report Type: Report from Study
  Country: CN (occurrence: CN)
  Receive Date: 20250214
  Receipt Date: 20250711
  Transmission Date: 20251020
  Serious: Yes (Hospitalization)
  Sender: REGENERON
  Company Number: CN-SA-2024SA368415

PATIENT
  Age: 79 Year
  Sex: Male

DRUGS (3)
  1. PRALUENT [Suspect]
     Active Substance: ALIROCUMAB
     Indication: Acute coronary syndrome
     Dosage: 75 MG, QOW, SOLUTION FOR INJECTION
     Route: 058
     Dates: start: 20221120
  2. PRALUENT [Suspect]
     Active Substance: ALIROCUMAB
     Dosage: 75 MG, QOW, SOLUTION FOR INJECTION
     Route: 058
     Dates: start: 20231102
  3. PRALUENT [Suspect]
     Active Substance: ALIROCUMAB
     Dosage: 75 MG, QOW, SOLUTION FOR INJECTION
     Route: 058
     Dates: start: 20240207

REACTIONS (1)
  - Febrile infection [Recovered/Resolved]

NARRATIVE: CASE EVENT DATE: 20240208
